FAERS Safety Report 5935479-7 (Version None)
Quarter: 2008Q4

REPORT INFORMATION
  Report Type: 
  Country: None (occurrence: None)
  Receive Date: 20081028
  Receipt Date: 20081013
  Transmission Date: 20090506
  Serious: Yes (Other)
  Sender: FDA-Public Use
  Company Number: CIP08002112

PATIENT
  Age: 64 Year
  Sex: Female

DRUGS (2)
  1. ASACOL [Suspect]
     Indication: COLITIS
     Dosage: 1600 MG, THREE TIMES DAILY, ORAL
     Route: 048
     Dates: start: 20060101
  2. VALTREX [Concomitant]

REACTIONS (2)
  - BLADDER CANCER [None]
  - RENAL NEOPLASM [None]
